FAERS Safety Report 11995203 (Version 3)
Quarter: 2019Q4

REPORT INFORMATION
  Report Type: Spontaneous
  Country: US (occurrence: US)
  Receive Date: 20160203
  Receipt Date: 20191213
  Transmission Date: 20200122
  Serious: No
  Sender: FDA-Public Use
  Company Number: US-UCBSA-2015033590

PATIENT
  Age: 45 Year
  Sex: Female
  Weight: 63 kg

DRUGS (16)
  1. ECHINACEA [Concomitant]
     Active Substance: ECHINACEA, UNSPECIFIED
     Indication: SUPPLEMENTATION THERAPY
  2. MAGNESIUM [Concomitant]
     Active Substance: MAGNESIUM
     Indication: SUPPLEMENTATION THERAPY
  3. PHENOBARBITAL. [Concomitant]
     Active Substance: PHENOBARBITAL
     Indication: PARTIAL SEIZURES
     Dosage: UNK
  4. CINNAMON. [Concomitant]
     Active Substance: CINNAMON
     Indication: SUPPLEMENTATION THERAPY
  5. POTASSIUM [Concomitant]
     Active Substance: POTASSIUM
     Indication: SUPPLEMENTATION THERAPY
  6. GLUCOSAMINE CHONDROITIN [Concomitant]
     Active Substance: CHONDROITIN SULFATE (BOVINE)\GLUCOSAMINE HYDROCHLORIDE
     Indication: SUPPLEMENTATION THERAPY
  7. CALTRATE WITH VITAMIN D [Concomitant]
     Active Substance: CALCIUM CARBONATE\CHOLECALCIFEROL
     Indication: SUPPLEMENTATION THERAPY
  8. STOOL SOFTENER (DOCUSATE) [Concomitant]
     Active Substance: DOCUSATE
     Indication: SUPPLEMENTATION THERAPY
  9. KEPPRA XR [Suspect]
     Active Substance: LEVETIRACETAM
     Indication: PARTIAL SEIZURES
     Dosage: 1500 MG, 2X/DAY (BID)
     Route: 048
  10. NIFEDIPINE. [Concomitant]
     Active Substance: NIFEDIPINE
     Indication: HYPERTENSION
     Dosage: 60 MG, ONCE DAILY (QD); EVERY AM
     Route: 048
  11. BYSTOLIC [Concomitant]
     Active Substance: NEBIVOLOL HYDROCHLORIDE
     Indication: CEREBROVASCULAR ACCIDENT PROPHYLAXIS
  12. ZONISAMIDE. [Concomitant]
     Active Substance: ZONISAMIDE
     Indication: PARTIAL SEIZURES
     Dosage: UNK
  13. TRILEPTAL [Concomitant]
     Active Substance: OXCARBAZEPINE
     Indication: PARTIAL SEIZURES
  14. MIGRALEVE [Concomitant]
     Active Substance: ACETAMINOPHEN\BUCLIZINE HYDROCHLORIDE\CODEINE
     Indication: PROPHYLAXIS
  15. MULTI-VIT [Concomitant]
     Active Substance: VITAMINS
     Indication: SUPPLEMENTATION THERAPY
  16. BYSTOLIC [Concomitant]
     Active Substance: NEBIVOLOL HYDROCHLORIDE
     Indication: HYPERTENSION
     Dosage: 25 MG, ONCE DAILY (QD); EVERY PM
     Route: 048

REACTIONS (6)
  - Intentional product misuse [Unknown]
  - Irritable bowel syndrome [Not Recovered/Not Resolved]
  - Hypothyroidism [Not Recovered/Not Resolved]
  - Nephrolithiasis [Recovered/Resolved]
  - Unevaluable event [Not Recovered/Not Resolved]
  - Viral infection [Recovered/Resolved]

NARRATIVE: CASE EVENT DATE: 201802
